FAERS Safety Report 6686023-0 (Version None)
Quarter: 2010Q2

REPORT INFORMATION
  Report Type: 
  Country: None (occurrence: None)
  Receive Date: 20100415
  Receipt Date: 20100415
  Transmission Date: 20101027
  Serious: Yes (Other)
  Sender: FDA-Public Use
  Company Number: None

PATIENT
  Age: 16 Year
  Sex: Female
  Weight: 55.7924 kg

DRUGS (1)
  1. ACCUTANE [Suspect]
     Indication: ACNE
     Dosage: 1 ONCE A DAY PO; 2YRS ON AND OFF
     Route: 048

REACTIONS (7)
  - ANGER [None]
  - DEPRESSION [None]
  - FEELING ABNORMAL [None]
  - INTENTIONAL SELF-INJURY [None]
  - MENTAL DISORDER [None]
  - MOOD SWINGS [None]
  - SUICIDAL IDEATION [None]
